FAERS Safety Report 23735797 (Version 3)
Quarter: 2024Q2

REPORT INFORMATION
  Report Type: Spontaneous
  Country: JP (occurrence: JP)
  Receive Date: 20240412
  Receipt Date: 20240426
  Transmission Date: 20240716
  Serious: Yes (Other)
  Sender: FDA-Public Use
  Company Number: JP-UCBJ-CD202403056UCBPHAPROD

PATIENT
  Age: 5 Year
  Sex: Female

DRUGS (7)
  1. LEVETIRACETAM [Suspect]
     Active Substance: LEVETIRACETAM
     Indication: Product used for unknown indication
     Dosage: 250 MILLIGRAM, PER DAY
     Route: 048
  2. FINTEPLA [Concomitant]
     Active Substance: FENFLURAMINE
     Indication: Product used for unknown indication
     Dosage: UNK
  3. FINTEPLA [Concomitant]
     Active Substance: FENFLURAMINE
     Dosage: 0.35 MG/KG
  4. DEPAKENE [Concomitant]
     Active Substance: VALPROIC ACID
     Indication: Product used for unknown indication
     Dosage: 320 MILLIGRAM
  5. DEPAKENE [Concomitant]
     Active Substance: VALPROIC ACID
     Dosage: 240 MILLIGRAM
  6. DEPAKENE [Concomitant]
     Active Substance: VALPROIC ACID
     Dosage: 160 MILLIGRAM, ONCE DAILY (QD)
  7. CLOBAZAM [Concomitant]
     Active Substance: CLOBAZAM
     Indication: Product used for unknown indication
     Dosage: UNK

REACTIONS (1)
  - Epilepsy [Recovering/Resolving]
